FAERS Safety Report 20240030 (Version 2)
Quarter: 2022Q1

REPORT INFORMATION
  Report Type: Report from Study
  Country: US (occurrence: US)
  Receive Date: 20211228
  Receipt Date: 20220109
  Transmission Date: 20220423
  Serious: Yes (Disabling, Other)
  Sender: FDA-Public Use
  Company Number: US-SANOFI-00901892

PATIENT
  Age: 48 Year
  Sex: Female

DRUGS (9)
  1. TERIFLUNOMIDE [Suspect]
     Active Substance: TERIFLUNOMIDE
     Indication: Multiple sclerosis
     Dosage: 14 MG, QD
     Route: 048
     Dates: start: 20190509
  2. BUPROPION HYDROCHLORIDE [Concomitant]
     Active Substance: BUPROPION HYDROCHLORIDE
     Dosage: 200 MG
  3. EMGALITY [Concomitant]
     Active Substance: GALCANEZUMAB-GNLM
  4. TRAZODONE [Concomitant]
     Active Substance: TRAZODONE HYDROCHLORIDE
     Indication: Migraine
     Dosage: 300 MG
  5. BUPROPION +PHARMA [Concomitant]
     Indication: Depression
     Dosage: 200 MG
  6. ABILIFY [Concomitant]
     Active Substance: ARIPIPRAZOLE
     Indication: Depression
  7. ALBUTEROL SULFATE [Concomitant]
     Active Substance: ALBUTEROL SULFATE
  8. BUSPAR [Concomitant]
     Active Substance: BUSPIRONE HYDROCHLORIDE
  9. FLOVENT [Concomitant]
     Active Substance: FLUTICASONE PROPIONATE

REACTIONS (23)
  - Walking aid user [Unknown]
  - Multiple sclerosis [Unknown]
  - Somnolence [Not Recovered/Not Resolved]
  - Initial insomnia [Not Recovered/Not Resolved]
  - Vitamin D decreased [Not Recovered/Not Resolved]
  - Vision blurred [Not Recovered/Not Resolved]
  - Cough [Unknown]
  - Somnolence [Unknown]
  - Migraine [Unknown]
  - Throat clearing [Unknown]
  - Pruritus [Unknown]
  - Pain [Unknown]
  - Dry mouth [Unknown]
  - Memory impairment [Unknown]
  - Tooth loss [Unknown]
  - Back disorder [Unknown]
  - Limb discomfort [Unknown]
  - Lethargy [Not Recovered/Not Resolved]
  - Feeling abnormal [Not Recovered/Not Resolved]
  - Feeling drunk [Not Recovered/Not Resolved]
  - Hypersomnia [Not Recovered/Not Resolved]
  - Disorganised speech [Not Recovered/Not Resolved]
  - Urinary incontinence [Not Recovered/Not Resolved]
